FAERS Safety Report 5038426-8 (Version None)
Quarter: 2006Q2

REPORT INFORMATION
  Report Type: 
  Country: None (occurrence: None)
  Receive Date: 20060601
  Receipt Date: 20060313
  Transmission Date: 20061013
  Serious: No
  Sender: FDA-Public Use
  Company Number: 2006PV010164

PATIENT
  Age: 63 Year
  Sex: Male
  Weight: 102.0593 kg

DRUGS (8)
  1. BYETTA [Suspect]
     Indication: DIABETES MELLITUS NON-INSULIN-DEPENDENT
     Dosage: SEE IMAGE
     Route: 058
     Dates: start: 20060210, end: 20060311
  2. BYETTA [Suspect]
     Indication: DIABETES MELLITUS NON-INSULIN-DEPENDENT
     Dosage: SEE IMAGE
     Route: 058
     Dates: start: 20060312
  3. GLUCOPHAGE XR [Concomitant]
  4. AMARYL [Concomitant]
  5. LANTUS [Concomitant]
  6. DIAVAN [Concomitant]
  7. PREVACOL [Concomitant]
  8. ACTOS [Concomitant]

REACTIONS (11)
  - ARTHRALGIA [None]
  - CONDITION AGGRAVATED [None]
  - DRUG INEFFECTIVE [None]
  - ERUCTATION [None]
  - FATIGUE [None]
  - HEART RATE INCREASED [None]
  - INJECTION SITE BRUISING [None]
  - INJECTION SITE PAIN [None]
  - JOINT STIFFNESS [None]
  - NAUSEA [None]
  - WEIGHT DECREASED [None]
